FAERS Safety Report 23838346 (Version 1)
Quarter: 2024Q2

REPORT INFORMATION
  Report Type: Spontaneous
  Country: US (occurrence: US)
  Receive Date: 20240509
  Receipt Date: 20240509
  Transmission Date: 20240716
  Serious: No
  Sender: FDA-Public Use
  Company Number: US-INTRA-CELLULAR THERAPIES, INC.-2024ICT00378

PATIENT
  Sex: Male

DRUGS (6)
  1. CAPLYTA [Suspect]
     Active Substance: LUMATEPERONE
     Indication: Bipolar disorder
     Dosage: LOWER DOSES; TITRATED UP
     Dates: start: 2023
  2. CAPLYTA [Suspect]
     Active Substance: LUMATEPERONE
     Dosage: 42 MG, 1X/DAY
  3. NIFEDIPINE [Suspect]
     Active Substance: NIFEDIPINE
     Dosage: UNK
  4. LITHIUM [Suspect]
     Active Substance: LITHIUM
     Dosage: UNK
  5. ATENOLOL [Concomitant]
     Active Substance: ATENOLOL
  6. PRAZOSIN [Concomitant]
     Active Substance: PRAZOSIN

REACTIONS (14)
  - Decreased appetite [Not Recovered/Not Resolved]
  - Constipation [Not Recovered/Not Resolved]
  - Mucosal dryness [Not Recovered/Not Resolved]
  - Nasal congestion [Not Recovered/Not Resolved]
  - Middle insomnia [Not Recovered/Not Resolved]
  - Therapeutic product effect incomplete [Unknown]
  - Diarrhoea [Not Recovered/Not Resolved]
  - Muscle spasms [Recovered/Resolved]
  - Sedation [Not Recovered/Not Resolved]
  - Dizziness [Not Recovered/Not Resolved]
  - Somnolence [Not Recovered/Not Resolved]
  - Headache [Not Recovered/Not Resolved]
  - Therapeutic response unexpected [Unknown]
  - Product dose omission issue [Recovered/Resolved]

NARRATIVE: CASE EVENT DATE: 20230101
